FAERS Safety Report 5991215-X (Version None)
Quarter: 2008Q4

REPORT INFORMATION
  Report Type: 
  Country: None (occurrence: None)
  Receive Date: 20081211
  Receipt Date: 20081204
  Transmission Date: 20090506
  Serious: Yes (Other)
  Sender: FDA-Public Use
  Company Number: CL-ELI_LILLY_AND_COMPANY-CL200811006276

PATIENT
  Age: 51 Year
  Sex: Male

DRUGS (1)
  1. HUMULIN N [Suspect]
     Dosage: 8 U, DAILY (1/D)
     Route: 065
     Dates: start: 20081027, end: 20081124

REACTIONS (1)
  - HYPERSENSITIVITY [None]
